FAERS Safety Report 10150675 (Version 2)
Quarter: 2014Q2

REPORT INFORMATION
  Report Type: Report from Study
  Country: NL (occurrence: NL)
  Receive Date: 20140502
  Receipt Date: 20140502
  Transmission Date: 20141212
  Serious: Yes (Death)
  Sender: FDA-Public Use
  Company Number: NL-ABBVIE-12P-114-0898481-00

PATIENT
  Age: 78 Year
  Sex: Male
  Weight: 80 kg

DRUGS (7)
  1. LUCRIN 11.25 MG [Suspect]
     Indication: PROSTATE CANCER
     Route: 058
     Dates: start: 20090910
  2. ACENOCOUMAROL [Concomitant]
     Indication: ANTICOAGULANT THERAPY
     Dosage: ACCORDING TO SCHEDULE
     Route: 048
     Dates: start: 2001
  3. CARVEDILOL [Concomitant]
     Indication: HYPERTENSION
     Dosage: 1/2 TIMES DAILY
     Route: 048
  4. EZETIMIBA/SIMVASTATINA [Concomitant]
     Indication: HYPERCHOLESTEROLAEMIA
     Dosage: 10/20MG, ONCE DAILY
     Route: 048
     Dates: start: 2001
  5. FUROSEMIDE [Concomitant]
     Indication: FLUID RETENTION
     Route: 048
     Dates: start: 2001
  6. PERINDOPRIL [Concomitant]
     Indication: HYPERTENSION
     Route: 048
     Dates: start: 2001
  7. PARACETAMOL [Concomitant]
     Indication: PAIN
     Dosage: 1 AS NECESSARY
     Route: 048

REACTIONS (2)
  - Death [Fatal]
  - Hot flush [Not Recovered/Not Resolved]
